FAERS Safety Report 8405327 (Version 4)
Quarter: 2014Q2

REPORT INFORMATION
  Report Type: Report from Study
  Country: AU (occurrence: AU)
  Receive Date: 20120214
  Receipt Date: 20140407
  Transmission Date: 20141212
  Serious: Yes (Hospitalization)
  Sender: FDA-Public Use
  Company Number: AU-JNJFOC-20120204224

PATIENT
  Age: 36 Year
  Sex: Female
  Weight: 64 kg

DRUGS (3)
  1. INVEGA SUSTENNA [Suspect]
     Indication: SCHIZOPHRENIA
     Route: 030
  2. INVEGA [Concomitant]
     Indication: SCHIZOPHRENIA
     Route: 048
     Dates: start: 201112
  3. SODIUM VALPROATE [Concomitant]
     Indication: AFFECTIVE DISORDER
     Route: 048
     Dates: start: 201112

REACTIONS (1)
  - Cognitive disorder [Recovered/Resolved]
